FAERS Safety Report 8634761 (Version 2)
Quarter: 2012Q4

REPORT INFORMATION
  Report Type: 
  Country: US (occurrence: US)
  Receive Date: 20120626
  Receipt Date: 20120907
  Transmission Date: 20130627
  Serious: Yes (Hospitalization, Other)
  Sender: FDA-Public Use
  Company Number: US-PFIZER INC-2012152476

PATIENT
  Age: 65 Year
  Sex: Female
  Weight: 72.56 kg

DRUGS (5)
  1. LYRICA [Suspect]
     Indication: NEURALGIA
     Dosage: 100 mg, 3x/day
  2. LYRICA [Suspect]
     Indication: ANXIETY
  3. HYDROCODONE [Suspect]
     Indication: PAIN
     Dosage: UNK
  4. VALIUM [Concomitant]
     Indication: CIRCADIAN RHYTHM SLEEP DISORDER
     Dosage: 10 mg, 2x/day
  5. HYDROCODONE [Concomitant]
     Indication: PAIN
     Dosage: UNK

REACTIONS (6)
  - Lung neoplasm malignant [Unknown]
  - Dysphonia [Unknown]
  - Malaise [Unknown]
  - Dyspnoea [Not Recovered/Not Resolved]
  - Therapeutic response unexpected [Unknown]
  - Pruritus [Unknown]
